FAERS Safety Report 16096120 (Version 1)
Quarter: 2019Q1

REPORT INFORMATION
  Report Type: Spontaneous
  Country: US (occurrence: US)
  Receive Date: 20190320
  Receipt Date: 20190320
  Transmission Date: 20190418
  Serious: Yes (Other)
  Sender: FDA-Public Use
  Company Number: US-SA-2019SA074587

PATIENT
  Sex: Female

DRUGS (1)
  1. PLAVIX [Suspect]
     Active Substance: CLOPIDOGREL BISULFATE
     Indication: PRODUCT USED FOR UNKNOWN INDICATION
     Dosage: UNK
     Route: 065

REACTIONS (8)
  - Hot flush [Unknown]
  - Sleep deficit [Unknown]
  - Ageusia [Unknown]
  - Unevaluable event [Unknown]
  - Mesenteric arterial occlusion [Unknown]
  - Headache [Unknown]
  - Muscle twitching [Unknown]
  - Fatigue [Unknown]
